FAERS Safety Report 4607607-7 (Version None)
Quarter: 2005Q1

REPORT INFORMATION
  Report Type: 
  Country: None (occurrence: None)
  Receive Date: 20050309
  Receipt Date: 20050221
  Transmission Date: 20050727
  Serious: Yes (Other)
  Sender: FDA-Public Use
  Company Number: DE_050215318

PATIENT
  Age: 49 Year
  Sex: Male

DRUGS (3)
  1. FLUOXETINE [Suspect]
     Indication: DEPRESSION
     Dosage: 20 MG DAY
     Dates: start: 20040120, end: 20040123
  2. FLUOXETINE [Suspect]
     Indication: PERSONALITY DISORDER
     Dosage: 20 MG DAY
     Dates: start: 20040120, end: 20040123
  3. REMERGIL (MIRTAZAPINE ORIFARM) [Concomitant]

REACTIONS (2)
  - DRUG INTERACTION [None]
  - HEPATIC FUNCTION ABNORMAL [None]
